FAERS Safety Report 20740638 (Version 1)
Quarter: 2022Q2

REPORT INFORMATION
  Report Type: Report from Study
  Country: AT (occurrence: AT)
  Receive Date: 20220422
  Receipt Date: 20220422
  Transmission Date: 20220721
  Serious: Yes (Hospitalization)
  Sender: FDA-Public Use
  Company Number: AT-ROCHE-3050312

PATIENT
  Age: 59 Year
  Sex: Female
  Weight: 86 kg

DRUGS (26)
  1. TRASTUZUMAB [Suspect]
     Active Substance: TRASTUZUMAB
     Indication: Breast cancer metastatic
     Dosage: 600 MILLIGRAM, Q3W,MOST RECENT DOSE PRIOR TO THE EVENT: 18/JUN/2021
     Route: 041
     Dates: start: 20210618, end: 20210910
  2. PACLITAXEL [Suspect]
     Active Substance: PACLITAXEL
     Indication: Breast cancer metastatic
     Dosage: 186.31 MILLIGRAM, QW
     Route: 042
     Dates: start: 20200103, end: 20200127
  3. PERTUZUMAB [Suspect]
     Active Substance: PERTUZUMAB
     Indication: Breast cancer metastatic
     Dosage: 840 MILLIGRAM, Q3W,MOST RECENT DOSE PRIOR TO THE EVENT: 3/JAN/2020
     Route: 042
     Dates: start: 20191014, end: 20191014
  4. CAPECITABINE [Suspect]
     Active Substance: CAPECITABINE
     Indication: Breast cancer metastatic
     Dosage: 1350 MILLIGRAM, BID,MOST RECENT DOSE PRIOR TO THE EVENT: 18/JUN/2021
     Route: 048
     Dates: start: 20210618, end: 20210924
  5. ADO-TRASTUZUMAB EMTANSINE [Suspect]
     Active Substance: ADO-TRASTUZUMAB EMTANSINE
     Indication: Breast cancer metastatic
     Dosage: 306 MILLIGRAM, Q3W
     Route: 042
     Dates: start: 20210316, end: 20210520
  6. TAMOXIFEN [Suspect]
     Active Substance: TAMOXIFEN
     Indication: Breast cancer metastatic
     Dosage: 20 MILLIGRAM, QD
     Route: 048
     Dates: start: 20210112, end: 20210304
  7. TUCATINIB [Suspect]
     Active Substance: TUCATINIB
     Indication: Breast cancer metastatic
     Dosage: 300 MG, BID,MOST RECENT DOSE PRIOR TO THE EVENT: 18/JUN/2021, 0.5 DAYS
     Route: 048
     Dates: start: 20210618, end: 20211001
  8. LETROZOLE [Suspect]
     Active Substance: LETROZOLE
     Indication: Breast cancer metastatic
     Dosage: 2.5 MILLIGRAM, QD,MOST RECENT DOSE PRIOR TO THE EVENT: 9/NOV/2020
     Route: 048
     Dates: start: 20200210, end: 20200907
  9. ROFLUMILAST [Concomitant]
     Active Substance: ROFLUMILAST
     Dosage: ONGOING = CHECKED
  10. VITAMINS WITH MINERALS [Concomitant]
     Active Substance: MINERALS\VITAMINS
     Dosage: ONGOING = CHECKED
  11. PASSEDAN [Concomitant]
     Dosage: ONGOING = CHECKED
     Dates: start: 20191010
  12. ALVESCO [Concomitant]
     Active Substance: CICLESONIDE
     Dosage: ONGOING = CHECKED
  13. DILTIAZEM [Concomitant]
     Active Substance: DILTIAZEM
     Dosage: ONGOING = CHECKED
  14. BEROTEC [Concomitant]
     Active Substance: FENOTEROL HYDROBROMIDE
     Dosage: ONGOING = CHECKED
  15. Acemin [Concomitant]
     Dosage: ONGOING = CHECKED
  16. METAMIZOLE [Concomitant]
     Active Substance: METAMIZOLE
     Indication: Chest pain
     Dosage: ONGOING = CHECKED
     Dates: start: 20200724
  17. ENTEROBENE [Concomitant]
     Indication: Diarrhoea
     Dosage: ONGOING = CHECKED
     Dates: start: 20191024
  18. VENLAFAXINE HYDROCHLORIDE [Concomitant]
     Active Substance: VENLAFAXINE HYDROCHLORIDE
     Dosage: ONGOING = CHECKED
  19. AMOXICILLIN\CLAVULANATE POTASSIUM [Concomitant]
     Active Substance: AMOXICILLIN\CLAVULANATE POTASSIUM
     Indication: Postoperative wound infection
     Dosage: ONGOING = NOT CHECKED
     Dates: start: 20211030, end: 20211105
  20. SIMVASTATIN [Concomitant]
     Active Substance: SIMVASTATIN
     Dosage: ONGOING = CHECKED
  21. Paspertin [Concomitant]
     Dosage: ONGOING = CHECKED
     Dates: start: 20191015
  22. BISOPROLOL FUMARATE [Concomitant]
     Active Substance: BISOPROLOL FUMARATE
     Dosage: ONGOING = CHECKED
  23. POLYETHYLENE GLYCOL 3350\POTASSIUM CHLORIDE\SODIUM BICARBONATE\SODIUM [Concomitant]
     Active Substance: POLYETHYLENE GLYCOL 3350\POTASSIUM CHLORIDE\SODIUM BICARBONATE\SODIUM CHLORIDE
     Dosage: ONGOING = CHECKED
     Dates: start: 20191015
  24. TRAZODONE HYDROCHLORIDE [Concomitant]
     Active Substance: TRAZODONE HYDROCHLORIDE
     Dosage: ONGOING = CHECKED
  25. OLODATEROL HYDROCHLORIDE\TIOTROPIUM BROMIDE MONOHYDRATE [Concomitant]
     Active Substance: OLODATEROL HYDROCHLORIDE\TIOTROPIUM BROMIDE MONOHYDRATE
     Dosage: ONGOING = CHECKED
  26. PANTOPRAZOLE SODIUM [Concomitant]
     Active Substance: PANTOPRAZOLE SODIUM
     Dosage: ONGOING = CHECKED

REACTIONS (2)
  - Wound dehiscence [Recovered/Resolved]
  - Postoperative wound infection [Recovered/Resolved]

NARRATIVE: CASE EVENT DATE: 20211019
